FAERS Safety Report 7595036-6 (Version None)
Quarter: 2011Q2

REPORT INFORMATION
  Report Type: 
  Country: None (occurrence: None)
  Receive Date: 20110620
  Receipt Date: 20110330
  Transmission Date: 20111010
  Serious: Yes (Death, Hospitalization)
  Sender: FDA-Public Use
  Company Number: UTC-006032

PATIENT
  Age: 51 Year
  Sex: Male
  Weight: 107.7 kg

DRUGS (2)
  1. TYVASO [Suspect]
     Indication: PULMONARY HYPERTENSION
     Dosage: 4 IN 1 D, INHALATION
     Route: 055
     Dates: start: 20110303
  2. REVATIO [Concomitant]

REACTIONS (5)
  - PULMONARY EMBOLISM [None]
  - UNRESPONSIVE TO STIMULI [None]
  - PROTHROMBIN TIME PROLONGED [None]
  - INTERNATIONAL NORMALISED RATIO INCREASED [None]
  - HAEMOPTYSIS [None]
